FAERS Safety Report 18593676 (Version 1)
Quarter: 2020Q4

REPORT INFORMATION
  Report Type: Spontaneous
  Country: US (occurrence: US)
  Receive Date: 20201209
  Receipt Date: 20201209
  Transmission Date: 20210114
  Serious: No
  Sender: FDA-Public Use
  Company Number: US-BIOVITRUM-2020US7271

PATIENT
  Age: 2 Month
  Sex: Female
  Weight: 5 kg

DRUGS (8)
  1. MOTRIN IB [Concomitant]
     Active Substance: IBUPROFEN
  2. SYNAGIS [Suspect]
     Active Substance: PALIVIZUMAB
     Indication: LOW BIRTH WEIGHT BABY
  3. PROBIOTIC 5B CELL CAP SPRINK [Concomitant]
  4. SYNAGIS [Suspect]
     Active Substance: PALIVIZUMAB
     Indication: PREMATURE BABY
     Route: 030
  5. SYNAGIS [Suspect]
     Active Substance: PALIVIZUMAB
     Indication: PULMONARY HAEMORRHAGE
  6. CHILDRENS ACETAMINOPHEN [Concomitant]
     Active Substance: ACETAMINOPHEN
  7. POLY-VI-SOL [Concomitant]
     Active Substance: VITAMINS
     Dosage: 250-50/ML DROPS
  8. SYNAGIS [Suspect]
     Active Substance: PALIVIZUMAB
     Indication: FALLOT^S TETRALOGY

REACTIONS (3)
  - Injection site rash [Recovered/Resolved]
  - Urticaria [Recovered/Resolved]
  - Off label use [Unknown]

NARRATIVE: CASE EVENT DATE: 202011
